FAERS Safety Report 8727232 (Version 2)
Quarter: 2015Q2

REPORT INFORMATION
  Report Type: Report from Study
  Country: US (occurrence: US)
  Receive Date: 20120816
  Receipt Date: 20150629
  Transmission Date: 20150821
  Serious: Yes (Other)
  Sender: FDA-Public Use
  Company Number: US-ROCHE-CID000000002058384

PATIENT
  Sex: Female

DRUGS (14)
  1. NITROGLYCERINE [Concomitant]
     Active Substance: NITROGLYCERIN
     Route: 065
  2. LIDOCAINE. [Concomitant]
     Active Substance: LIDOCAINE
     Route: 042
  3. NITROGLYCERINE [Concomitant]
     Active Substance: NITROGLYCERIN
     Route: 065
  4. HEPARIN [Concomitant]
     Active Substance: HEPARIN SODIUM
     Dosage: 720 MICRON
     Route: 041
  5. LIDOCAINE. [Concomitant]
     Active Substance: LIDOCAINE
     Route: 040
  6. ATROPINE [Concomitant]
     Active Substance: ATROPINE
     Route: 042
  7. ACTIVASE [Suspect]
     Active Substance: ALTEPLASE
     Route: 042
  8. ACTIVASE [Suspect]
     Active Substance: ALTEPLASE
     Route: 042
  9. NITROGLYCERINE [Concomitant]
     Active Substance: NITROGLYCERIN
     Route: 065
  10. ACTIVASE [Suspect]
     Active Substance: ALTEPLASE
     Indication: MYOCARDIAL INFARCTION
     Route: 042
  11. NITROGLYCERINE [Concomitant]
     Active Substance: NITROGLYCERIN
     Route: 065
  12. ASPIRIN. [Concomitant]
     Active Substance: ASPIRIN
     Route: 048
  13. NITROGLYCERINE [Concomitant]
     Active Substance: NITROGLYCERIN
     Route: 065
  14. MORPHINE SULFATE. [Concomitant]
     Active Substance: MORPHINE SULFATE
     Route: 065

REACTIONS (5)
  - Chest pain [Unknown]
  - Oedema peripheral [Unknown]
  - Somnolence [Unknown]
  - Feeling cold [Unknown]
  - Hyperhidrosis [Unknown]
